FAERS Safety Report 9714830 (Version 1)
Quarter: 2013Q4

REPORT INFORMATION
  Report Type: Spontaneous
  Country: US (occurrence: US)
  Receive Date: 20131126
  Receipt Date: 20131126
  Transmission Date: 20140711
  Serious: No
  Sender: FDA-Public Use
  Company Number: US-B.I. PHARMACEUTICALS,INC./RIDGEFIELD-2013-BI-37568BP

PATIENT
  Sex: Female
  Weight: 45 kg

DRUGS (8)
  1. SPIRIVA [Suspect]
     Indication: CHRONIC OBSTRUCTIVE PULMONARY DISEASE
     Dosage: 18 MCG
     Route: 055
     Dates: start: 2004
  2. ALBUTEROL [Concomitant]
     Indication: CHRONIC OBSTRUCTIVE PULMONARY DISEASE
     Dosage: (INHALATION SPRAY)
     Route: 055
  3. FLUTICASONE PROPIONATE [Concomitant]
     Indication: RHINORRHOEA
     Dosage: (NASAL SPRAY)
     Route: 045
  4. SYMBICORT [Concomitant]
     Indication: CHRONIC OBSTRUCTIVE PULMONARY DISEASE
     Dosage: (INHALATION SPRAY)
     Route: 055
  5. FORTICAL [Concomitant]
     Indication: OSTEOPOROSIS
     Dosage: (NASAL SPRAY)
     Route: 045
  6. LORATADINE [Concomitant]
     Indication: NASAL CONGESTION
     Route: 048
  7. ALBUTEROL SULFATE [Concomitant]
     Indication: CHRONIC OBSTRUCTIVE PULMONARY DISEASE
     Dosage: 5 MG
     Route: 055
  8. OXYCODONE [Concomitant]
     Indication: BACK PAIN
     Dosage: 10 MG
     Route: 048

REACTIONS (2)
  - Eye pain [Not Recovered/Not Resolved]
  - Abnormal loss of weight [Not Recovered/Not Resolved]
